FAERS Safety Report 9223823 (Version 3)
Quarter: 2013Q3

REPORT INFORMATION
  Report Type: Report from Study
  Country: JP (occurrence: JP)
  Receive Date: 20130410
  Receipt Date: 20130730
  Transmission Date: 20140515
  Serious: No
  Sender: FDA-Public Use
  Company Number: JP-US-EMD SERONO, INC.-7203842

PATIENT
  Sex: Female
  Weight: 48 kg

DRUGS (3)
  1. GONAL-F RFF PEN [Suspect]
     Indication: OVULATION INDUCTION
     Route: 058
     Dates: start: 20100114, end: 20100117
  2. HCG [Concomitant]
     Indication: OVULATION INDUCTION
     Route: 030
     Dates: start: 20100124, end: 20100124
  3. HMG                                /01277604/ [Concomitant]
     Indication: OVULATION INDUCTION
     Route: 030
     Dates: start: 20100118, end: 20100124

REACTIONS (1)
  - Abortion missed [Unknown]
